FAERS Safety Report 9449975 (Version 1)
Quarter: 2013Q3

REPORT INFORMATION
  Report Type: Spontaneous
  Country: US (occurrence: US)
  Receive Date: 20130809
  Receipt Date: 20130809
  Transmission Date: 20140515
  Serious: Yes (Other)
  Sender: FDA-Public Use
  Company Number: US-BAUSCH-BL-2013-004448

PATIENT
  Age: 84 Year
  Sex: Male

DRUGS (4)
  1. BESIVANCE (BESIFLOXACIN OPHTHALMIC SUSPENSION) 0.6% [Suspect]
     Indication: INTRAOCULAR LENS IMPLANT
     Dosage: 1 DROP; FOUR TIMES A DAY; LEFT EYE
     Route: 047
     Dates: start: 20130624, end: 20130704
  2. BROMDAY 0.09% [Concomitant]
     Indication: PRODUCT USED FOR UNKNOWN INDICATION
     Dosage: 1 DROP; DAILY; LEFT EYE
     Route: 047
  3. PRESERVATIVE FREE ARTIFICAL TEARS [Concomitant]
     Indication: PRODUCT USED FOR UNKNOWN INDICATION
     Dosage: PER AS NEEDED; LEFT EYE
     Route: 047
  4. DUREZOL [Concomitant]
     Indication: PRODUCT USED FOR UNKNOWN INDICATION
     Dosage: 1 DROPS; FOUR TIMES A DAY; LEFT EYE
     Route: 047

REACTIONS (7)
  - Off label use [Unknown]
  - Corneal epithelium defect [Unknown]
  - Corneal dystrophy [Unknown]
  - Punctate keratitis [Unknown]
  - Corneal oedema [Unknown]
  - Corneal disorder [Unknown]
  - Keratopathy [Unknown]
